FAERS Safety Report 7596028-3 (Version None)
Quarter: 2011Q3

REPORT INFORMATION
  Report Type: 
  Country: None (occurrence: None)
  Receive Date: 20110707
  Receipt Date: 20110629
  Transmission Date: 20111222
  Serious: Yes (Other)
  Sender: FDA-Public Use
  Company Number: PHHY2011US53217

PATIENT
  Sex: Female

DRUGS (3)
  1. MG / GM VAGINAL CREAM [Concomitant]
     Dosage: UNK UKN, OT
     Route: 061
  2. SULFA DRUG [Concomitant]
     Indication: RASH
     Dosage: UNK UKN, OT
  3. GILENYA [Suspect]
     Indication: MULTIPLE SCLEROSIS
     Dosage: 0.5 MG, QD
     Route: 048
     Dates: start: 20110523, end: 20110614

REACTIONS (5)
  - MOVEMENT DISORDER [None]
  - HEAD INJURY [None]
  - URINARY TRACT INFECTION [None]
  - FALL [None]
  - ASTHENIA [None]
